FAERS Safety Report 17091002 (Version 1)
Quarter: 2019Q4

REPORT INFORMATION
  Report Type: Spontaneous
  Country: PE (occurrence: PE)
  Receive Date: 20191129
  Receipt Date: 20191129
  Transmission Date: 20200122
  Serious: Yes (Hospitalization, Other)
  Sender: FDA-Public Use
  Company Number: PE-SA-2019SA309175

PATIENT
  Age: 60 Year
  Sex: Male

DRUGS (4)
  1. TOUJEO [Suspect]
     Active Substance: INSULIN GLARGINE
     Dosage: 10UI AT NIGHT
     Route: 065
  2. TOUJEO [Suspect]
     Active Substance: INSULIN GLARGINE
     Dosage: 8-10IU
     Route: 058
     Dates: start: 20191017
  3. LOSARTAN. [Concomitant]
     Active Substance: LOSARTAN
     Dosage: 50MG QD (10AM) FOR 2 WEEKS
     Route: 065
  4. TOUJEO [Suspect]
     Active Substance: INSULIN GLARGINE
     Indication: DIABETES MELLITUS
     Dosage: 15-20IU IN THE MORNING
     Route: 065
     Dates: start: 20190915

REACTIONS (14)
  - Syncope [Recovered/Resolved]
  - Head injury [Recovered/Resolved]
  - Blood glucose increased [Recovered/Resolved]
  - Pallor [Unknown]
  - Road traffic accident [Recovered/Resolved]
  - Blood glucose increased [Recovered/Resolved]
  - Hyperglycaemia [Recovered/Resolved]
  - Somnolence [Recovered/Resolved]
  - Dizziness [Unknown]
  - Brain hypoxia [Unknown]
  - Arrhythmia [Recovered/Resolved]
  - Weight decreased [Recovered/Resolved]
  - Dizziness [Recovered/Resolved]
  - Fatigue [Recovered/Resolved]

NARRATIVE: CASE EVENT DATE: 20191001
